FAERS Safety Report 5496953-3 (Version None)
Quarter: 2007Q4

REPORT INFORMATION
  Report Type: 
  Country: None (occurrence: None)
  Receive Date: 20071025
  Receipt Date: 20071019
  Transmission Date: 20080405
  Serious: Yes (Life-Threatening, Hospitalization)
  Sender: FDA-Public Use
  Company Number: B0486139A

PATIENT
  Age: 79 Year
  Sex: Female
  Weight: 35 kg

DRUGS (14)
  1. ARIXTRA [Suspect]
     Indication: THROMBOSIS PROPHYLAXIS
     Dosage: 1.5MG PER DAY
     Route: 058
     Dates: start: 20070825, end: 20070830
  2. RINGEREAZE [Suspect]
     Indication: PAIN
     Dosage: 60MG THREE TIMES PER DAY
     Route: 048
     Dates: start: 20070825, end: 20070830
  3. GLYSENNID [Concomitant]
     Dosage: 12MG PER DAY
     Route: 048
     Dates: start: 20070823, end: 20070823
  4. LENDORMIN [Concomitant]
     Dosage: .25MG PER DAY
     Route: 048
     Dates: start: 20070823, end: 20070823
  5. DIOVAN [Concomitant]
     Indication: HYPERTENSION
     Dosage: 40MG PER DAY
     Route: 048
     Dates: start: 20070824
  6. ULGUT [Concomitant]
     Indication: PAIN
     Dosage: 600MG PER DAY
     Route: 048
     Dates: start: 20070825, end: 20070830
  7. MAXIPIME [Concomitant]
     Dosage: 2G PER DAY
     Route: 042
     Dates: start: 20070824, end: 20070829
  8. ADONA [Concomitant]
     Dosage: 100MG PER DAY
     Route: 042
     Dates: start: 20070824, end: 20070824
  9. H2 BLOCKER [Concomitant]
     Dates: start: 20070830
  10. FRESH FROZEN PLASMA [Concomitant]
     Dates: start: 20070831
  11. UNKNOWN TREATMENT [Concomitant]
     Dates: start: 20070831
  12. GAMOFA [Concomitant]
     Dates: end: 20070906
  13. LANSOPRAZOLE [Concomitant]
     Dosage: 30MG PER DAY
     Dates: start: 20070906
  14. UNKNOWN MEDICATION [Concomitant]
     Dosage: 3G PER DAY
     Dates: start: 20070906

REACTIONS (4)
  - DECREASED APPETITE [None]
  - GASTRIC ULCER HAEMORRHAGE [None]
  - MELAENA [None]
  - POST PROCEDURAL HAEMORRHAGE [None]
